FAERS Safety Report 4522405-0 (Version None)
Quarter: 2004Q4

REPORT INFORMATION
  Report Type: 
  Country: None (occurrence: None)
  Receive Date: 20041209
  Receipt Date: 20041129
  Transmission Date: 20050328
  Serious: Yes (Hospitalization)
  Sender: FDA-Public Use
  Company Number: PHBS2004PT16126

PATIENT
  Age: 51 Year
  Sex: Female

DRUGS (3)
  1. MIACALCIN [Suspect]
  2. CALCIORAL (NCH) [Suspect]
  3. ESTRADERM [Suspect]
     Route: 062

REACTIONS (5)
  - APHONIA [None]
  - ERYTHEMA [None]
  - MALAISE [None]
  - PARAESTHESIA [None]
  - RASH PAPULAR [None]
